FAERS Safety Report 15229228 (Version 3)
Quarter: 2018Q4

REPORT INFORMATION
  Report Type: Spontaneous
  Country: US (occurrence: US)
  Receive Date: 20180801
  Receipt Date: 20181207
  Transmission Date: 20190204
  Serious: Yes (Hospitalization)
  Sender: FDA-Public Use
  Company Number: US-VIFOR (INTERNATIONAL) INC.-VIT-2016-06152

PATIENT
  Age: 70 Year
  Sex: Female
  Weight: 118.04 kg

DRUGS (15)
  1. DILTIAZEM XR [Concomitant]
     Active Substance: DILTIAZEM
  2. FOLIC ACID. [Concomitant]
     Active Substance: FOLIC ACID
  3. TAMSULOSIN [Concomitant]
     Active Substance: TAMSULOSIN
  4. VELTASSA [Suspect]
     Active Substance: PATIROMER
     Route: 048
     Dates: start: 20160803
  5. NOVOLIN [Concomitant]
     Active Substance: INSULIN HUMAN
  6. HUMALOG [Concomitant]
     Active Substance: INSULIN LISPRO
  7. OXYCODONE/APAP [Concomitant]
     Active Substance: ACETAMINOPHEN\OXYCODONE HYDROCHLORIDE
  8. LOSARTAN. [Concomitant]
     Active Substance: LOSARTAN
  9. DULOXETINE. [Concomitant]
     Active Substance: DULOXETINE
  10. VITAMIN D [Concomitant]
     Active Substance: CHOLECALCIFEROL
  11. VELTASSA [Suspect]
     Active Substance: PATIROMER
     Indication: HYPERKALAEMIA
     Route: 048
     Dates: start: 201603
  12. VELTASSA [Suspect]
     Active Substance: PATIROMER
     Route: 048
  13. MAGNESIUM OXIDE. [Concomitant]
     Active Substance: MAGNESIUM OXIDE
  14. HUMULIN NOS [Concomitant]
     Active Substance: INSULIN HUMAN
  15. MECLIZINE [Concomitant]
     Active Substance: MECLIZINE HYDROCHLORIDE

REACTIONS (7)
  - Ill-defined disorder [Not Recovered/Not Resolved]
  - Inappropriate schedule of product administration [Unknown]
  - Blood glucose increased [Recovering/Resolving]
  - Product dose omission [Not Recovered/Not Resolved]
  - Asthenia [Not Recovered/Not Resolved]
  - Dizziness [Not Recovered/Not Resolved]
  - Paraesthesia [Not Recovered/Not Resolved]

NARRATIVE: CASE EVENT DATE: 2016
